FAERS Safety Report 21707851 (Version 2)
Quarter: 2023Q1

REPORT INFORMATION
  Report Type: Other
  Country: None (occurrence: US)
  Receive Date: 20221209
  Receipt Date: 20230103
  Transmission Date: 20230418
  Serious: Yes (Hospitalization, Other)
  Sender: FDA-Public Use
  Company Number: US-B.Braun Medical Inc.-2135731

PATIENT
  Age: 55 Year
  Sex: Male

DRUGS (1)
  1. CEFTAZIDIME AND DEXTROSE [Suspect]
     Active Substance: CEFTAZIDIME

REACTIONS (8)
  - Mania [Recovered/Resolved]
  - Depression [Recovered/Resolved]
  - Delusion [Recovered/Resolved]
  - Irritability [Recovered/Resolved]
  - Agitation [Recovered/Resolved]
  - Anxiety [Recovered/Resolved]
  - Tearfulness [Recovered/Resolved]
  - Off label use [Recovered/Resolved]
